FAERS Safety Report 11534110 (Version 4)
Quarter: 2016Q1

REPORT INFORMATION
  Report Type: Report from Study
  Country: US (occurrence: US)
  Receive Date: 20150922
  Receipt Date: 20160224
  Transmission Date: 20160525
  Serious: Yes (Other)
  Sender: FDA-Public Use
  Company Number: US-AMGEN-USASP2015096656

PATIENT
  Age: 59 Year
  Sex: Female

DRUGS (4)
  1. ENBREL [Suspect]
     Active Substance: ETANERCEPT
     Dosage: UNK UNK, UNK
     Route: 058
  2. PREDNISONE. [Concomitant]
     Active Substance: PREDNISONE
     Dosage: 5 MG, UNK
     Dates: start: 201511
  3. ENBREL [Suspect]
     Active Substance: ETANERCEPT
     Dosage: UNK UNK, UNK
     Route: 058
  4. ENBREL [Suspect]
     Active Substance: ETANERCEPT
     Indication: RHEUMATOID ARTHRITIS
     Dosage: 50 MG, QWK
     Route: 058
     Dates: start: 20150731

REACTIONS (18)
  - Arthropathy [Unknown]
  - Fatigue [Unknown]
  - Herpes zoster [Recovered/Resolved]
  - Injection site swelling [Recovered/Resolved]
  - Vision blurred [Unknown]
  - Injection site erythema [Recovered/Resolved]
  - Drug effect incomplete [Unknown]
  - Joint swelling [Unknown]
  - Joint stiffness [Unknown]
  - Infection [Recovered/Resolved]
  - Tooth disorder [Unknown]
  - Gait disturbance [Unknown]
  - Injection site pruritus [Recovered/Resolved]
  - Ophthalmic herpes zoster [Recovering/Resolving]
  - Eyelid oedema [Recovering/Resolving]
  - Arthralgia [Unknown]
  - Musculoskeletal stiffness [Unknown]
  - Injection site pain [Not Recovered/Not Resolved]

NARRATIVE: CASE EVENT DATE: 2015
